FAERS Safety Report 9525077 (Version 2)
Quarter: 2013Q3

REPORT INFORMATION
  Report Type: Spontaneous
  Country: JP (occurrence: JP)
  Receive Date: 20130916
  Receipt Date: 20130927
  Transmission Date: 20140515
  Serious: Yes (Death, Life-Threatening, Other)
  Sender: FDA-Public Use
  Company Number: JP-ASTRAZENECA-2013SE69061

PATIENT
  Age: 46 Year
  Sex: Male

DRUGS (7)
  1. DIPRIVAN [Suspect]
     Indication: INDUCTION OF ANAESTHESIA
     Route: 042
  2. FENTANYL [Suspect]
     Indication: INDUCTION OF ANAESTHESIA
  3. FENTANYL [Suspect]
     Indication: MAINTENANCE OF ANAESTHESIA
  4. REMIFENTANIL [Suspect]
     Indication: MAINTENANCE OF ANAESTHESIA
  5. ROCURONIUM [Suspect]
     Indication: MAINTENANCE OF ANAESTHESIA
  6. SEVOFLURANE [Suspect]
     Indication: MAINTENANCE OF ANAESTHESIA
  7. NICORANDIL [Concomitant]
     Dosage: 2 MG/H

REACTIONS (4)
  - Myocardial infarction [Fatal]
  - Electrocardiogram ST segment depression [Recovered/Resolved]
  - Bundle branch block right [Recovered/Resolved]
  - Acute coronary syndrome [Unknown]
